FAERS Safety Report 18219549 (Version 1)
Quarter: 2020Q3

REPORT INFORMATION
  Report Type: Spontaneous
  Country: TW (occurrence: TW)
  Receive Date: 20200901
  Receipt Date: 20200901
  Transmission Date: 20201103
  Serious: Yes (Death, Other)
  Sender: FDA-Public Use
  Company Number: TW-JNJFOC-20200832818

PATIENT
  Sex: Female

DRUGS (17)
  1. RISPERIDONE. [Suspect]
     Active Substance: RISPERIDONE
     Route: 048
  2. RISPERDAL CONSTA [Suspect]
     Active Substance: RISPERIDONE
     Indication: PRODUCT USED FOR UNKNOWN INDICATION
     Route: 030
  3. RISPERDAL CONSTA [Suspect]
     Active Substance: RISPERIDONE
     Route: 030
  4. RISPERDAL CONSTA [Suspect]
     Active Substance: RISPERIDONE
  5. FLUOXETINE [Suspect]
     Active Substance: FLUOXETINE HYDROCHLORIDE
     Indication: PRODUCT USED FOR UNKNOWN INDICATION
     Route: 065
  6. GLIMEPIRIDE W/METFORMIN HYDROCHLORIDE [Suspect]
     Active Substance: GLIMEPIRIDE\METFORMIN
     Indication: PRODUCT USED FOR UNKNOWN INDICATION
     Dosage: 2/500 MG
     Route: 065
  7. RISPERDAL CONSTA [Suspect]
     Active Substance: RISPERIDONE
     Route: 030
  8. RISPERDAL [Suspect]
     Active Substance: RISPERIDONE
     Route: 048
  9. ESTAZOLAM. [Suspect]
     Active Substance: ESTAZOLAM
     Indication: PRODUCT USED FOR UNKNOWN INDICATION
     Route: 065
  10. RISPERDAL [Suspect]
     Active Substance: RISPERIDONE
     Indication: PRODUCT USED FOR UNKNOWN INDICATION
     Route: 048
  11. PROPRANOLOL HCL [Suspect]
     Active Substance: PROPRANOLOL HYDROCHLORIDE
     Indication: PRODUCT USED FOR UNKNOWN INDICATION
     Route: 065
  12. CARVEDILOL. [Suspect]
     Active Substance: CARVEDILOL
     Indication: PRODUCT USED FOR UNKNOWN INDICATION
     Route: 065
  13. XANAX [Suspect]
     Active Substance: ALPRAZOLAM
     Indication: PRODUCT USED FOR UNKNOWN INDICATION
     Route: 065
  14. BIPERIDEN HCL [Suspect]
     Active Substance: BIPERIDEN HYDROCHLORIDE
     Indication: PRODUCT USED FOR UNKNOWN INDICATION
     Route: 065
  15. SEVIKAR [Suspect]
     Active Substance: AMLODIPINE BESYLATE\OLMESARTAN MEDOXOMIL
     Indication: PRODUCT USED FOR UNKNOWN INDICATION
     Dosage: 10/40 MG
     Route: 065
  16. RISPERIDONE. [Suspect]
     Active Substance: RISPERIDONE
     Indication: PRODUCT USED FOR UNKNOWN INDICATION
     Route: 048
  17. RISPERDAL [Suspect]
     Active Substance: RISPERIDONE
     Indication: PRODUCT USED FOR UNKNOWN INDICATION
     Dosage: 1 MG/ML
     Route: 048

REACTIONS (15)
  - Headache [Unknown]
  - Dyskinesia [Unknown]
  - Death [Fatal]
  - Breast enlargement [Unknown]
  - Obesity [Unknown]
  - Sedation [Unknown]
  - Dry mouth [Unknown]
  - Palpitations [Unknown]
  - Menstruation irregular [Unknown]
  - Galactorrhoea [Unknown]
  - Nervousness [Unknown]
  - Constipation [Unknown]
  - Vision blurred [Unknown]
  - Dysuria [Unknown]
  - Sexual dysfunction [Unknown]
